FAERS Safety Report 22108628 (Version 1)
Quarter: 2023Q1

REPORT INFORMATION
  Report Type: Spontaneous
  Country: US (occurrence: US)
  Receive Date: 20230317
  Receipt Date: 20230317
  Transmission Date: 20230418
  Serious: No
  Sender: FDA-Public Use
  Company Number: US-MICRO LABS LIMITED-ML2023-00945

PATIENT
  Age: 73 Year
  Sex: Female

DRUGS (1)
  1. TRAVOPROST [Suspect]
     Active Substance: TRAVOPROST
     Indication: Product used for unknown indication
     Dosage: ONE DROP IN EACH EYE IN THE NIGHT
     Route: 047
     Dates: start: 202302, end: 202302

REACTIONS (8)
  - Migraine [Unknown]
  - Eye irritation [Unknown]
  - Injury corneal [Unknown]
  - Drug intolerance [Unknown]
  - Drug hypersensitivity [Unknown]
  - Headache [Unknown]
  - Eye pruritus [Unknown]
  - Product packaging issue [Unknown]
